FAERS Safety Report 20085843 (Version 1)
Quarter: 2021Q4

REPORT INFORMATION
  Report Type: Spontaneous
  Country: ES (occurrence: ES)
  Receive Date: 20211118
  Receipt Date: 20211118
  Transmission Date: 20220303
  Serious: Yes (Hospitalization, Other)
  Sender: FDA-Public Use
  Company Number: ES-ESTEVE-2021-00187

PATIENT
  Age: 61 Year
  Sex: Male
  Weight: 80 kg

DRUGS (17)
  1. ALPRAZOLAM [Interacting]
     Active Substance: ALPRAZOLAM
     Dosage: DOSAGE TEXT: UNKNOWN
     Dates: start: 20191002
  2. LORAZEPAM [Interacting]
     Active Substance: LORAZEPAM
     Dosage: DOSAGE TEXT: UNKNOWN
     Dates: start: 20191010
  3. FENTANYL [Interacting]
     Active Substance: FENTANYL
     Dosage: DOSAGE TEXT: UNKNOWN
     Dates: start: 20190709
  4. DIAZEPAM [Interacting]
     Active Substance: DIAZEPAM
     Dosage: DOSAGE TEXT: UNKNOWN
     Dates: start: 20190912
  5. METHADONE HYDROCHLORIDE [Interacting]
     Active Substance: METHADONE HYDROCHLORIDE
     Dosage: UNK
  6. BETAMETHASONE DIPROPIONATE\GENTAMICIN SULFATE [Concomitant]
     Active Substance: BETAMETHASONE DIPROPIONATE\GENTAMICIN SULFATE
     Dosage: DOSAGE TEXT: UNKNOWN
     Dates: start: 20210419
  7. ENOXAPARINE BECAT [Concomitant]
     Dosage: DOSAGE TEXT: UNKNOWN
     Dates: start: 2018
  8. RETIFANLIMAB [Concomitant]
     Active Substance: RETIFANLIMAB
     Indication: Non-small cell lung cancer
     Dosage: 500 MILLIGRAM, Q4W  (PHARMACEUTICAL FORM :INFUSION)
     Route: 042
     Dates: start: 20190808
  9. RETIFANLIMAB [Concomitant]
     Active Substance: RETIFANLIMAB
     Dosage: DOSAGE TEXT: UNKNOWN (PHARMACEUTICAL FORM: INFUSION)
     Route: 042
     Dates: start: 20210812
  10. EPLERENONE [Concomitant]
     Active Substance: EPLERENONE
     Dosage: DOSAGE TEXT: UNKNOWN
     Dates: start: 2018
  11. VALSARTAN [Concomitant]
     Active Substance: VALSARTAN
     Dosage: DOSAGE TEXT: UNKNOWN
     Dates: start: 2018
  12. PROPILTIOURACILE [Concomitant]
     Dosage: DOSAGE TEXT: UNKNOWN
     Dates: start: 20200507
  13. ORABASE [BENZOCAINE] [Concomitant]
     Dosage: DOSAGE TEXT: UNKNOWN
     Dates: start: 20210419
  14. AMLODIPINE [Concomitant]
     Active Substance: AMLODIPINE BESYLATE
     Dosage: DOSAGE TEXT: UNKNOWN
     Dates: start: 2018
  15. BISOPROLOL [Concomitant]
     Active Substance: BISOPROLOL
     Dosage: DOSAGE TEXT: UNKNOWN
     Dates: start: 2018
  16. AMIODARONE [Concomitant]
     Active Substance: AMIODARONE
     Dosage: DOSAGE TEXT: UNKNOWN
     Dates: start: 201808
  17. PREDNISONE [Concomitant]
     Active Substance: PREDNISONE
     Dosage: DOSAGE TEXT: UNKNOWN
     Dates: start: 20210520

REACTIONS (3)
  - Confusional state [Recovered/Resolved]
  - Drug interaction [Unknown]
  - Toxicity to various agents [Recovered/Resolved]

NARRATIVE: CASE EVENT DATE: 20210801
